FAERS Safety Report 21682323 (Version 12)
Quarter: 2023Q1

REPORT INFORMATION
  Report Type: Other
  Country: CA (occurrence: None)
  Receive Date: 20221205
  Receipt Date: 20230210
  Transmission Date: 20230418
  Serious: Yes (Other)
  Sender: FDA-Public Use
  Company Number: CA-ROCHE-3230827

PATIENT
  Age: 67 Year
  Sex: Female

DRUGS (2)
  1. OCREVUS [Suspect]
     Active Substance: OCRELIZUMAB
     Indication: Relapsing-remitting multiple sclerosis
     Dosage: 300 MG AT DAY 0 AND 14, THEN 600 MG EVERY 6 MONTH
     Route: 042
     Dates: start: 20211202
  2. TYLENOL [Concomitant]
     Active Substance: ACETAMINOPHEN

REACTIONS (6)
  - Pneumonia [Unknown]
  - COVID-19 [Unknown]
  - Fatigue [Unknown]
  - Headache [Unknown]
  - Nasopharyngitis [Unknown]
  - Insomnia [Unknown]

NARRATIVE: CASE EVENT DATE: 20221129
